FAERS Safety Report 21073997 (Version 1)
Quarter: 2022Q3

REPORT INFORMATION
  Report Type: Other
  Country: PT (occurrence: PT)
  Receive Date: 20220713
  Receipt Date: 20220713
  Transmission Date: 20221027
  Serious: Yes (Other)
  Sender: FDA-Public Use
  Company Number: PT-CELLTRION INC.-2022PT010734

PATIENT

DRUGS (4)
  1. HERZUMA [Suspect]
     Active Substance: TRASTUZUMAB-PKRB
     Indication: Breast cancer
     Dosage: UNK
     Dates: start: 20220523
  2. Perindopril 5 + Indapamida 1.25 [Concomitant]
  3. Trazodona 100mg [Concomitant]
  4. Escitalopram 10 mg id [Concomitant]

REACTIONS (1)
  - Lymphopenia [Not Recovered/Not Resolved]

NARRATIVE: CASE EVENT DATE: 20220613
